FAERS Safety Report 17116082 (Version 1)
Quarter: 2019Q4

REPORT INFORMATION
  Report Type: Spontaneous
  Country: IT (occurrence: IT)
  Receive Date: 20191205
  Receipt Date: 20191205
  Transmission Date: 20200122
  Serious: Yes (Other)
  Sender: FDA-Public Use
  Company Number: IT-009507513-1911ITA006606

PATIENT
  Age: 81 Year
  Sex: Male
  Weight: 80 kg

DRUGS (1)
  1. ZEPATIER [Suspect]
     Active Substance: ELBASVIR\GRAZOPREVIR
     Indication: HEPATITIS C
     Dosage: 1 DOSAGE FORM, QD
     Route: 048

REACTIONS (3)
  - Erectile dysfunction [Recovered/Resolved]
  - Pain [Recovered/Resolved]
  - Myalgia [Recovered/Resolved]

NARRATIVE: CASE EVENT DATE: 20190209
